FAERS Safety Report 7904768-9 (Version None)
Quarter: 2011Q4

REPORT INFORMATION
  Report Type: 
  Country: None (occurrence: None)
  Receive Date: 20111109
  Receipt Date: 20111031
  Transmission Date: 20120403
  Serious: Yes (Hospitalization, Other)
  Sender: FDA-Public Use
  Company Number: US-BAYER-201036127NA

PATIENT
  Age: 25 Year
  Sex: Female
  Weight: 79.819 kg

DRUGS (1)
  1. YAZ [Suspect]
     Indication: CONTRACEPTION
     Dosage: UNK
     Route: 048
     Dates: start: 20080701, end: 20090201

REACTIONS (3)
  - ANXIETY [None]
  - DEPRESSION [None]
  - DEEP VEIN THROMBOSIS [None]
